FAERS Safety Report 4860055-7 (Version None)
Quarter: 2005Q4

REPORT INFORMATION
  Report Type: 
  Country: None (occurrence: None)
  Receive Date: 20051219
  Receipt Date: 20051213
  Transmission Date: 20060501
  Serious: Yes (Hospitalization)
  Sender: FDA-Public Use
  Company Number: CA-ROCHE-428200

PATIENT
  Age: 61 Year
  Sex: Female

DRUGS (12)
  1. CAPECITABINE [Suspect]
     Dosage: PER PROTOCOL DOSE GIVEN ON DAYS 1 TO 14 EVERY THREE WEEKS
     Route: 048
     Dates: start: 20051024
  2. IXABEPILONE [Suspect]
     Indication: BREAST CANCER
     Route: 042
     Dates: start: 20051024
  3. EFFEXOR [Concomitant]
     Dates: start: 20041204
  4. NORVASC [Concomitant]
     Dates: start: 20030315
  5. ASAPHEN [Concomitant]
     Dates: start: 20030315
  6. BISOPROLOL [Concomitant]
     Dates: start: 20030615
  7. ALTACE [Concomitant]
     Dates: start: 20000615
  8. DILAUDID [Concomitant]
     Dates: start: 20051006
  9. LASIX [Concomitant]
     Dates: start: 20030315
  10. ATIVAN [Concomitant]
     Dates: start: 20041220
  11. VALTREX [Concomitant]
     Dates: start: 20051122
  12. MOUTHWASH NOS [Concomitant]
     Dosage: MAGIC MOUTHWASH
     Dates: start: 20051028

REACTIONS (2)
  - ACUTE PULMONARY OEDEMA [None]
  - ANAEMIA [None]
